FAERS Safety Report 5806090-3 (Version None)
Quarter: 2008Q3

REPORT INFORMATION
  Report Type: 
  Country: None (occurrence: None)
  Receive Date: 20080710
  Receipt Date: 20080707
  Transmission Date: 20090109
  Serious: Yes (Other)
  Sender: FDA-Public Use
  Company Number: GB-WYE-G01826208

PATIENT
  Age: 16 Month
  Sex: Male
  Weight: 8.8 kg

DRUGS (13)
  1. PIPERACILLIN AND TAZOBACTAM [Suspect]
     Indication: LOWER RESPIRATORY TRACT INFECTION
     Dosage: 790MG, FREQUENCY UNKNOWN
     Route: 042
     Dates: start: 20080617
  2. CEFOTAXIME SODIUM [Concomitant]
     Dosage: UNKNOWN
  3. CEFTRIAXONE [Concomitant]
     Dosage: UNKNOWN
  4. DOPAMINE HCL [Concomitant]
     Dosage: UNKNOWN
  5. ERYTHROMYCIN [Concomitant]
     Indication: LOWER RESPIRATORY TRACT INFECTION
     Route: 042
     Dates: start: 20080617
  6. VECURONIUM BROMIDE [Concomitant]
     Dosage: 2 UG/KG, FREQUENCY UNKNOWN
     Route: 042
  7. MIDAZOLAM HCL [Concomitant]
     Dosage: 4 UG/KG, FREQUENCY UNKNOWN
     Route: 042
  8. MORPHINE [Concomitant]
     Dosage: 40 UG/KG, FREQUENCY UNKNOWN
     Route: 042
  9. NITRIC OXIDE [Concomitant]
     Dosage: UNKNOWN
  10. NORADRENALINE [Concomitant]
     Dosage: UNKNOWN
  11. SILDENAFIL CITRATE [Concomitant]
     Dosage: UNKNOWN
  12. AMIKACIN [Concomitant]
     Indication: LOWER RESPIRATORY TRACT INFECTION
     Route: 042
     Dates: start: 20080617
  13. METHYLPREDNISOLONE [Concomitant]
     Dosage: UNKNOWN

REACTIONS (2)
  - HYPOTENSION [None]
  - OXYGEN SATURATION DECREASED [None]
